FAERS Safety Report 6594701-7 (Version None)
Quarter: 2010Q1

REPORT INFORMATION
  Report Type: 
  Country: None (occurrence: None)
  Receive Date: 20100222
  Receipt Date: 20100219
  Transmission Date: 20100710
  Serious: Yes (Other)
  Sender: FDA-Public Use
  Company Number: CHPA2010US03443

PATIENT
  Age: 73 Year
  Sex: Female

DRUGS (1)
  1. MAALOX MS TOTAL STOMACH RELIEF (NCH) [Suspect]
     Indication: DYSPEPSIA
     Dosage: 6 TSP, QD
     Route: 048
     Dates: start: 20100210, end: 20100211

REACTIONS (4)
  - ABDOMINAL PAIN UPPER [None]
  - COMPUTERISED TOMOGRAM [None]
  - FAECES DISCOLOURED [None]
  - GASTROINTESTINAL HAEMORRHAGE [None]
